FAERS Safety Report 10201241 (Version 3)
Quarter: 2014Q2

REPORT INFORMATION
  Report Type: Spontaneous
  Country: FR (occurrence: FR)
  Receive Date: 20140528
  Receipt Date: 20140623
  Transmission Date: 20141212
  Serious: Yes (Other)
  Sender: FDA-Public Use
  Company Number: FR-PFIZER INC-2014144797

PATIENT
  Age: 40 Year
  Sex: Male

DRUGS (7)
  1. SOLU-MEDROL [Suspect]
     Dosage: 20 MG/2ML,1 DF, 1X/DAY
     Route: 042
     Dates: start: 20140509, end: 20140515
  2. OMEPRAZOLE [Suspect]
     Indication: GASTROOESOPHAGEAL REFLUX DISEASE
     Dosage: 20 MG, 1X/DAY
     Route: 048
  3. AVAMYS [Suspect]
     Indication: RHINITIS ALLERGIC
     Dosage: 27.5 ?G/ACTUATION,1 DF, 1X/DAY
     Route: 055
  4. LACTULOSE [Concomitant]
  5. KESTIN [Concomitant]
  6. NYSTATIN [Concomitant]
  7. NOZINAN [Concomitant]

REACTIONS (5)
  - Pancreatitis acute [Not Recovered/Not Resolved]
  - Haemorrhage [Unknown]
  - Shock haemorrhagic [Unknown]
  - Rectal haemorrhage [Unknown]
  - Colitis [Unknown]
